FAERS Safety Report 14841441 (Version 1)
Quarter: 2018Q2

REPORT INFORMATION
  Report Type: Spontaneous
  Country: US (occurrence: US)
  Receive Date: 20180503
  Receipt Date: 20180503
  Transmission Date: 20180711
  Serious: Yes (Other)
  Sender: FDA-Public Use
  Company Number: US-AUROBINDO-AUR-APL-2018-022487

PATIENT
  Age: 40 Year
  Sex: Male

DRUGS (5)
  1. TYLENOL [Suspect]
     Active Substance: ACETAMINOPHEN
     Indication: PYREXIA
  2. VANCOMYCIN [Suspect]
     Active Substance: VANCOMYCIN
     Indication: STAPHYLOCOCCAL INFECTION
     Dosage: 2.5 GRAM, DAILY
     Route: 042
     Dates: start: 20171017, end: 2017
  3. TYLENOL [Suspect]
     Active Substance: ACETAMINOPHEN
     Indication: MYALGIA
     Dosage: 1.5-3 GRAM ()
     Route: 048
     Dates: start: 2017, end: 2017
  4. TYLENOL [Suspect]
     Active Substance: ACETAMINOPHEN
     Indication: ARTHRALGIA
  5. RIFAMPICIN [Suspect]
     Active Substance: RIFAMPIN
     Indication: PRODUCT USED FOR UNKNOWN INDICATION
     Dosage: 2 DIVIDED DOSES
     Dates: start: 20171022, end: 20171026

REACTIONS (1)
  - Drug-induced liver injury [Recovered/Resolved]

NARRATIVE: CASE EVENT DATE: 20171026
